FAERS Safety Report 18216740 (Version 4)
Quarter: 2020Q3

REPORT INFORMATION
  Report Type: Spontaneous
  Country: TW (occurrence: TW)
  Receive Date: 20200901
  Receipt Date: 20200910
  Transmission Date: 20201103
  Serious: Yes (Death, Life-Threatening, Hospitalization, Other)
  Sender: FDA-Public Use
  Company Number: TW-PFIZER INC-2020335043

PATIENT
  Age: 44 Year
  Sex: Male
  Weight: 100 kg

DRUGS (3)
  1. HEPARIN SODIUM. [Suspect]
     Active Substance: HEPARIN SODIUM
     Dosage: 20 IU/KG, SINGLE (BOLUS DOSE)(CONTINUOUS INFUSION)
     Route: 040
     Dates: start: 20200329
  2. HYDROXYCHLOROQUINE [Concomitant]
     Active Substance: HYDROXYCHLOROQUINE
     Indication: COVID-19
     Dosage: 200 MG, 3X/DAY
     Route: 048
     Dates: start: 20200326
  3. HEPARIN SODIUM. [Suspect]
     Active Substance: HEPARIN SODIUM
     Indication: CARDIOGENIC SHOCK
     Dosage: UNK
     Dates: start: 20200329

REACTIONS (6)
  - Cardiac failure [Fatal]
  - Ventricular arrhythmia [Fatal]
  - Hypercoagulation [Fatal]
  - Heparin-induced thrombocytopenia [Fatal]
  - Upper gastrointestinal haemorrhage [Fatal]
  - Acute myocardial infarction [Fatal]

NARRATIVE: CASE EVENT DATE: 202003
